FAERS Safety Report 14320855 (Version 1)
Quarter: 2017Q4

REPORT INFORMATION
  Report Type: Report from Study
  Country: US (occurrence: US)
  Receive Date: 20171223
  Receipt Date: 20171223
  Transmission Date: 20180321
  Serious: No
  Sender: FDA-Public Use
  Company Number: US-AMGEN-USASL2017188182

PATIENT
  Age: 15 Year
  Sex: Female

DRUGS (1)
  1. ENBREL [Suspect]
     Active Substance: ETANERCEPT
     Indication: JUVENILE IDIOPATHIC ARTHRITIS
     Dosage: UNK
     Route: 065

REACTIONS (7)
  - Vision blurred [Unknown]
  - Injection site warmth [Unknown]
  - Therapy non-responder [Unknown]
  - Abdominal pain upper [Unknown]
  - Injection site pruritus [Unknown]
  - Injection site erythema [Unknown]
  - Headache [Unknown]

NARRATIVE: CASE EVENT DATE: 201712
